FAERS Safety Report 12356546 (Version 3)
Quarter: 2020Q3

REPORT INFORMATION
  Report Type: Report from Study
  Country: PA (occurrence: PA)
  Receive Date: 20160511
  Receipt Date: 20200827
  Transmission Date: 20201102
  Serious: Yes (Hospitalization, Other)
  Sender: FDA-Public Use
  Company Number: PHHY2016PA045474

PATIENT
  Age: 78 Year
  Sex: Female

DRUGS (1)
  1. TASIGNA [Suspect]
     Active Substance: NILOTINIB
     Indication: PRODUCT USED FOR UNKNOWN INDICATION
     Dosage: 200 MG, UNK
     Route: 065
     Dates: start: 2015, end: 20200314

REACTIONS (14)
  - Limb injury [Unknown]
  - Diabetes mellitus [Unknown]
  - Syncope [Unknown]
  - Limb discomfort [Unknown]
  - Haemoglobin decreased [Unknown]
  - Memory impairment [Unknown]
  - Decreased appetite [Unknown]
  - Fall [Unknown]
  - Abdominal distension [Unknown]
  - Insomnia [Unknown]
  - Muscular weakness [Unknown]
  - Malaise [Unknown]
  - Hypoaesthesia [Unknown]
  - Muscle spasms [Unknown]
